FAERS Safety Report 8858276 (Version 1)
Quarter: 2012Q4

REPORT INFORMATION
  Report Type: 
  Country: US (occurrence: US)
  Receive Date: 20121024
  Receipt Date: 20121024
  Transmission Date: 20130627
  Serious: No
  Sender: FDA-Public Use
  Company Number: US-AMGEN-USASP2011069671

PATIENT
  Age: 70 Year
  Sex: Female

DRUGS (2)
  1. ENBREL [Suspect]
     Indication: RHEUMATOID ARTHRITIS
     Dosage: 50 mg, qwk
     Dates: start: 20030301
  2. ENBREL [Suspect]
     Indication: PSORIASIS

REACTIONS (6)
  - Nasal congestion [Not Recovered/Not Resolved]
  - Secretion discharge [Recovered/Resolved]
  - Sinus headache [Not Recovered/Not Resolved]
  - Oedema peripheral [Recovered/Resolved]
  - Staphylococcal skin infection [Recovered/Resolved]
  - Psoriasis [Not Recovered/Not Resolved]
